FAERS Safety Report 4338350-X (Version None)
Quarter: 2004Q2

REPORT INFORMATION
  Report Type: 
  Country: None (occurrence: None)
  Receive Date: 20040407
  Receipt Date: 20040129
  Transmission Date: 20050107
  Serious: No
  Sender: FDA-Public Use
  Company Number: 2003JP007304

PATIENT
  Age: 62 Year
  Sex: Female
  Weight: 58.6 kg

DRUGS (7)
  1. PROGRAF [Suspect]
     Indication: INTERSTITIAL LUNG DISEASE
     Dosage: 4 MG, ORAL
     Route: 048
     Dates: start: 20031008, end: 20031023
  2. IMMUNOGLOBULIN HUMAN NORMAL (IMMUNOGLOBULIN HUMAN NORMAL) INJECTION [Concomitant]
  3. CYCLOPHOSPHAMIDE [Concomitant]
  4. MEDROL [Concomitant]
  5. SULFAMETHOXAZOLE + TRIMETHOPRIM [Concomitant]
  6. ACTONEL [Concomitant]
  7. OMEPRAZOLE [Concomitant]

REACTIONS (2)
  - HYPOGAMMAGLOBULINAEMIA [None]
  - INTERSTITIAL LUNG DISEASE [None]
